FAERS Safety Report 19301465 (Version 1)
Quarter: 2021Q2

REPORT INFORMATION
  Report Type: Spontaneous
  Country: AU (occurrence: AU)
  Receive Date: 20210525
  Receipt Date: 20210525
  Transmission Date: 20210717
  Serious: Yes (Hospitalization)
  Sender: FDA-Public Use
  Company Number: AU-MYLANLABS-2021M1030575

PATIENT
  Age: 64 Year
  Sex: Male

DRUGS (14)
  1. PROPOFOL. [Concomitant]
     Active Substance: PROPOFOL
     Indication: ANAESTHESIA
     Dosage: 110 MILLIGRAM
     Route: 065
  2. FENTANYL. [Suspect]
     Active Substance: FENTANYL
     Indication: ANAESTHESIA
     Dosage: 100 MICROGRAM
     Route: 065
  3. SINEMET [Concomitant]
     Active Substance: CARBIDOPA\LEVODOPA
     Indication: COGWHEEL RIGIDITY
     Dosage: 2 DOSAGE FORM, TWO TABLETS ADMINISTERED VIA NASOGASTRIC TUBE, BY CRUSHING THEM
  4. AMANTADINE. [Concomitant]
     Active Substance: AMANTADINE HYDROCHLORIDE
     Indication: PARKINSON^S DISEASE
     Dosage: 100 MILLIGRAM, BID
     Route: 048
  5. TRAMADOL. [Suspect]
     Active Substance: TRAMADOL
     Indication: ANALGESIC THERAPY
     Dosage: TOTAL DOSE: 100MG DURING 6 HRS OF SURGERY
     Route: 065
  6. AMANTADINE. [Concomitant]
     Active Substance: AMANTADINE HYDROCHLORIDE
     Indication: COGWHEEL RIGIDITY
     Dosage: 1 DOSAGE FORM, ADMINISTERED VIA NASOGASTRIC TUBE, BY CRUSHING IT
  7. PARACETAMOL [Concomitant]
     Active Substance: ACETAMINOPHEN
     Indication: ANALGESIC THERAPY
     Dosage: TOTAL DOSE: 1 G DURING 6 HRS OF SURGERY
     Route: 065
  8. PARECOXIB [Concomitant]
     Active Substance: PARECOXIB
     Indication: ANALGESIC THERAPY
     Dosage: TOTAL DOSE: 40MG DURING 6 HRS OF SURGERY
     Route: 065
  9. SINEMET [Concomitant]
     Active Substance: CARBIDOPA\LEVODOPA
     Indication: PARKINSON^S DISEASE
     Dosage: ADMINISTERED 5 TIMES DAILY
     Route: 048
  10. ROCURONIUM [Concomitant]
     Active Substance: ROCURONIUM BROMIDE
     Indication: MUSCLE RELAXANT THERAPY
     Dosage: 50 MILLIGRAM
     Route: 065
  11. DESFLURANE. [Concomitant]
     Active Substance: DESFLURANE
     Indication: MAINTENANCE OF ANAESTHESIA
     Dosage: 1 MINIMUM ALVEOLAR CONCENTRATION
     Route: 065
  12. CLONIDINE. [Concomitant]
     Active Substance: CLONIDINE
     Indication: ANALGESIC THERAPY
     Dosage: TOTAL DOSE: 60 UG DURING 6 HRS OF SURGERY
     Route: 065
  13. MORPHINE [Suspect]
     Active Substance: MORPHINE
     Indication: ANALGESIC THERAPY
     Dosage: TOTAL DOSE: 20MG DURING 6 HRS OF SURGERY
     Route: 065
  14. MIDAZOLAM. [Concomitant]
     Active Substance: MIDAZOLAM
     Indication: ANAESTHESIA
     Dosage: 1 MILLIGRAM
     Route: 065

REACTIONS (1)
  - Cogwheel rigidity [Recovered/Resolved]
